FAERS Safety Report 5327971-3 (Version None)
Quarter: 2007Q2

REPORT INFORMATION
  Report Type: 
  Country: None (occurrence: None)
  Receive Date: 20070517
  Receipt Date: 20070508
  Transmission Date: 20071010
  Serious: Yes (Other)
  Sender: FDA-Public Use
  Company Number: JP-PFIZER INC-2007037611

PATIENT

DRUGS (1)
  1. VIAGRA [Suspect]
     Route: 048

REACTIONS (1)
  - GLAUCOMA [None]
